FAERS Safety Report 9370153 (Version 2)
Quarter: 2013Q3

REPORT INFORMATION
  Report Type: Spontaneous
  Country: BR (occurrence: BR)
  Receive Date: 20130626
  Receipt Date: 20130828
  Transmission Date: 20140515
  Serious: Yes (Other)
  Sender: FDA-Public Use
  Company Number: BR-ASTRAZENECA-2013SE47478

PATIENT
  Age: 1010 Month
  Sex: Female

DRUGS (1)
  1. CRESTOR [Suspect]
     Indication: BLOOD PRESSURE FLUCTUATION
     Route: 048

REACTIONS (4)
  - Blood pressure fluctuation [Recovered/Resolved]
  - Tremor [Not Recovered/Not Resolved]
  - Pain in extremity [Not Recovered/Not Resolved]
  - Off label use [Not Recovered/Not Resolved]
